FAERS Safety Report 15108792 (Version 4)
Quarter: 2018Q3

REPORT INFORMATION
  Report Type: Spontaneous
  Country: IT (occurrence: IT)
  Receive Date: 20180705
  Receipt Date: 20180822
  Transmission Date: 20181010
  Serious: Yes (Hospitalization)
  Sender: FDA-Public Use
  Company Number: IT-TEVA-2018-IT-919013

PATIENT
  Age: 92 Year
  Sex: Male

DRUGS (9)
  1. SERTRALINE [Suspect]
     Active Substance: SERTRALINE HYDROCHLORIDE
     Indication: PRODUCT USED FOR UNKNOWN INDICATION
     Route: 048
     Dates: start: 20180101, end: 20180210
  2. ALLOPURINOL. [Concomitant]
     Active Substance: ALLOPURINOL
  3. COTAREG 80 MG/12,5 MG COMPRESSE RIVESTITE CON FILM [Concomitant]
  4. COSOPT 20 MG/ML + 5 MG/ML, COLLIRIO, SOLUZIONE [Concomitant]
  5. XALATAN 50 MICROGRAMMI/ML COLLIRIO, SOLUZIONE [Concomitant]
  6. XATRAL [Concomitant]
     Active Substance: ALFUZOSIN
  7. PANTORC 20 MG COMPRESSE GASTRORESISTENTI [Concomitant]
     Active Substance: PANTOPRAZOLE SODIUM
  8. ARIXTRA [Suspect]
     Active Substance: FONDAPARINUX SODIUM
     Indication: PRODUCT USED FOR UNKNOWN INDICATION
     Route: 058
     Dates: start: 20180101, end: 20180210
  9. BRIMONIDINE TARTRATE. [Concomitant]
     Active Substance: BRIMONIDINE TARTRATE
     Route: 047

REACTIONS (5)
  - Haematuria [Unknown]
  - Loss of consciousness [Unknown]
  - Hyponatraemia [Unknown]
  - Confusional state [Unknown]
  - Headache [Unknown]

NARRATIVE: CASE EVENT DATE: 20180210
